FAERS Safety Report 4805130-8 (Version None)
Quarter: 2005Q4

REPORT INFORMATION
  Report Type: 
  Country: None (occurrence: None)
  Receive Date: 20051017
  Receipt Date: 20051007
  Transmission Date: 20060501
  Serious: Yes (Death, Hospitalization, Disabling, Other)
  Sender: FDA-Public Use
  Company Number: 163-20785-04080380

PATIENT
  Age: 82 Year
  Sex: Male

DRUGS (15)
  1. THALOMID [Suspect]
     Indication: MULTIPLE MYELOMA
     Dosage: 200 MG, DAILY, ORAL
     Route: 048
     Dates: start: 20040719, end: 20040830
  2. DECADRON [Concomitant]
  3. AMBIEN [Concomitant]
  4. LIPITOR [Concomitant]
  5. ZESTRIL [Concomitant]
  6. IMURAN [Concomitant]
  7. TOPROL-XL [Concomitant]
  8. ACETYLSALICYLIC ACID SRT [Concomitant]
  9. PROCRIT [Concomitant]
  10. ARANESP [Concomitant]
  11. PROTONIX [Concomitant]
  12. REGLAN [Concomitant]
  13. AREDIA [Concomitant]
  14. MELPHALAN                   (MELPHALAN) [Concomitant]
  15. PREDNISONE [Concomitant]

REACTIONS (3)
  - ANAEMIA [None]
  - ASTHENIA [None]
  - LEUKAEMIA PLASMACYTIC [None]
